FAERS Safety Report 8972609 (Version 1)
Quarter: 2012Q4

REPORT INFORMATION
  Report Type: 
  Country: JP (occurrence: JP)
  Receive Date: 20121218
  Receipt Date: 20121218
  Transmission Date: 20130627
  Serious: Yes (Other)
  Sender: FDA-Public Use
  Company Number: JP-ROCHE-1167386

PATIENT
  Age: 66 Year
  Sex: Male

DRUGS (3)
  1. XELODA [Suspect]
     Indication: RECTAL CANCER
     Dosage: Dosage is uncertain
     Route: 048
  2. AVASTIN [Suspect]
     Indication: RECTAL CANCER
     Dosage: Dosage is uncertain
     Route: 041
  3. ELPLAT [Concomitant]
     Indication: RECTAL CANCER
     Dosage: Dosage is uncertain.
     Route: 041

REACTIONS (2)
  - Interstitial lung disease [Recovered/Resolved]
  - Parkinsonism [Recovered/Resolved]
